FAERS Safety Report 8169639-4 (Version None)
Quarter: 2012Q1

REPORT INFORMATION
  Report Type: 
  Country: None (occurrence: None)
  Receive Date: 20120228
  Receipt Date: 20120223
  Transmission Date: 20120608
  Serious: No
  Sender: FDA-Public Use
  Company Number: US-PFIZER INC-2012035839

PATIENT
  Sex: Female

DRUGS (2)
  1. CHANTIX [Suspect]
     Indication: SMOKING CESSATION THERAPY
     Dosage: UNK
     Dates: start: 20110101
  2. CHANTIX [Suspect]
     Dosage: UNK
     Dates: start: 20120101

REACTIONS (4)
  - DRUG INEFFECTIVE [None]
  - DEPRESSED MOOD [None]
  - FEELING ABNORMAL [None]
  - FRUSTRATION [None]
